FAERS Safety Report 4313568-0 (Version None)
Quarter: 2004Q1

REPORT INFORMATION
  Report Type: 
  Country: None (occurrence: None)
  Receive Date: 20040304
  Receipt Date: 20040213
  Transmission Date: 20041129
  Serious: Yes (Other)
  Sender: FDA-Public Use
  Company Number: USA040259305

PATIENT
  Sex: Female

DRUGS (1)
  1. GEMZAR [Suspect]
     Indication: BREAST CANCER METASTATIC
     Dosage: 1000 MG/M2/WEEK
     Dates: start: 20030901

REACTIONS (3)
  - BONE MARROW TOXICITY [None]
  - BONE PAIN [None]
  - MYOSITIS [None]
